FAERS Safety Report 19127442 (Version 1)
Quarter: 2021Q2

REPORT INFORMATION
  Report Type: Spontaneous
  Country: US (occurrence: US)
  Receive Date: 20210413
  Receipt Date: 20210413
  Transmission Date: 20210717
  Serious: No
  Sender: FDA-Public Use
  Company Number: US-ALLERGAN-2020442US

PATIENT
  Sex: Female

DRUGS (1)
  1. LATISSE [Suspect]
     Active Substance: BIMATOPROST
     Indication: GROWTH OF EYELASHES
     Dosage: 2 GTT, QHS; 1 DROP PER APPLICATOR PER EYE ONCE DAY AT NIGHT TO UPPER LID LASH LINES
     Route: 003
     Dates: start: 202003

REACTIONS (2)
  - Therapeutic product effect incomplete [Unknown]
  - Dry eye [Not Recovered/Not Resolved]
